FAERS Safety Report 5504859-6 (Version None)
Quarter: 2007Q4

REPORT INFORMATION
  Report Type: 
  Country: None (occurrence: None)
  Receive Date: 20071031
  Receipt Date: 20071019
  Transmission Date: 20080405
  Serious: Yes (Hospitalization)
  Sender: FDA-Public Use
  Company Number: 2007US002613

PATIENT
  Age: 70 Year
  Sex: Female

DRUGS (24)
  1. PROGRAF [Suspect]
     Indication: RENAL TRANSPLANT
     Dosage: 5.5 MG, BID; ORAL
     Route: 048
     Dates: start: 20061103
  2. MYCOPHENOLATE MOFETIL (MYCOPHENOLATE MOFETL) [Suspect]
     Indication: RENAL TRANSPLANT
     Dosage: 500 MG, TID; ORAL
     Route: 048
     Dates: start: 20051101
  3. BACTRIM [Concomitant]
  4. IRON (IRON) [Concomitant]
  5. LOPRESSOR [Concomitant]
  6. PROTONIX [Concomitant]
  7. LASIX [Concomitant]
  8. COLACE (DOCUSATE SODIUM) [Concomitant]
  9. IPRATROPIUM BROMIDE [Concomitant]
  10. DOCUSATE SODIUM (DOCUSATE SODIUM) [Concomitant]
  11. WELLBUTRIN [Concomitant]
  12. KAYEXALATE [Concomitant]
  13. NEPHROCAPS (FOLIC ACID, VITAMINS NOS) [Concomitant]
  14. SIMVASTATIN [Concomitant]
  15. NITROGLYCERIN [Concomitant]
  16. PTILOSEC [Concomitant]
  17. SODIUM BICARBONATE IN PLASTIC CONTAINER [Concomitant]
  18. LABETALOL HCL [Concomitant]
  19. FUROSEMIDE (FUROSEMIDE SODIUM) [Concomitant]
  20. NORVASC [Concomitant]
  21. EPOGEN [Concomitant]
  22. OSCAL D (VITAMIN D NOS) [Concomitant]
  23. VICODIN [Concomitant]
  24. ALBUTEROL (SALBUTAMOL SULFATE) [Concomitant]

REACTIONS (2)
  - BLOOD CREATINE INCREASED [None]
  - HYPOVOLAEMIA [None]
